FAERS Safety Report 19872048 (Version 1)
Quarter: 2021Q3

REPORT INFORMATION
  Report Type: Spontaneous
  Country: US (occurrence: US)
  Receive Date: 20210923
  Receipt Date: 20210923
  Transmission Date: 20211014
  Serious: No
  Sender: FDA-Public Use
  Company Number: US-CELLTRION INC.-2021US002527

PATIENT

DRUGS (1)
  1. INFLECTRA [Suspect]
     Active Substance: INFLIXIMAB-DYYB
     Indication: CROHN^S DISEASE
     Dosage: UNKNOWN, HAS BEEN ON IT APPROXIMATELY A YEAR
     Route: 065

REACTIONS (4)
  - Adverse event [Unknown]
  - Sneezing [Unknown]
  - Symptom recurrence [Unknown]
  - Product dose omission issue [Unknown]
